FAERS Safety Report 6179497-5 (Version None)
Quarter: 2009Q2

REPORT INFORMATION
  Report Type: 
  Country: None (occurrence: None)
  Receive Date: 20090501
  Receipt Date: 20090501
  Transmission Date: 20091009
  Serious: Yes (Other)
  Sender: FDA-Public Use
  Company Number: None

PATIENT
  Sex: Female
  Weight: 104.3273 kg

DRUGS (1)
  1. KAPIDEX [Suspect]
     Indication: GASTROOESOPHAGEAL REFLUX DISEASE
     Dosage: 60MG 1/DAY PO
     Route: 048
     Dates: start: 20090428, end: 20090430

REACTIONS (6)
  - ABDOMINAL DISTENSION [None]
  - DIARRHOEA [None]
  - MALAISE [None]
  - OROPHARYNGEAL PAIN [None]
  - RETCHING [None]
  - UNEVALUABLE EVENT [None]
